FAERS Safety Report 4930130-7 (Version None)
Quarter: 2006Q1

REPORT INFORMATION
  Report Type: 
  Country: None (occurrence: None)
  Receive Date: 20060228
  Receipt Date: 20060217
  Transmission Date: 20060701
  Serious: Yes (Other)
  Sender: FDA-Public Use
  Company Number: DE-2005-026270

PATIENT
  Age: 17 Year
  Sex: Female

DRUGS (4)
  1. YASMIN [Suspect]
     Dosage: ORAL
     Route: 048
  2. ERGENYL CHRONO (VALPROIC ACID, VALPROATE SODIUM) [Suspect]
     Indication: EPILEPSY
     Dosage: 1 TAB (S), 1X/DAY, ORAL
     Route: 048
  3. LAMOTRIGINE [Concomitant]
  4. IBUPROFEN [Concomitant]

REACTIONS (2)
  - DRUG INTERACTION [None]
  - VENOUS THROMBOSIS LIMB [None]
